FAERS Safety Report 5917134-2 (Version None)
Quarter: 2008Q4

REPORT INFORMATION
  Report Type: 
  Country: None (occurrence: None)
  Receive Date: 20081014
  Receipt Date: 20081007
  Transmission Date: 20090506
  Serious: Yes (Hospitalization)
  Sender: FDA-Public Use
  Company Number: IT-AVENTIS-200815395EU

PATIENT
  Age: 83 Year
  Sex: Male

DRUGS (9)
  1. LASIX [Suspect]
     Route: 048
     Dates: start: 20080726
  2. LASITONE [Suspect]
     Route: 048
     Dates: start: 20080801
  3. APROVEL [Suspect]
     Route: 048
     Dates: start: 20080726, end: 20080830
  4. SEROXAT [Suspect]
     Indication: DEPRESSION
     Route: 048
     Dates: start: 20080801, end: 20080830
  5. ATARAX [Suspect]
     Indication: DEPRESSION
     Route: 048
     Dates: start: 20080801, end: 20080830
  6. MINITRAN                           /00003201/ [Suspect]
     Route: 061
     Dates: start: 20080726
  7. CARDURA                            /00639301/ [Suspect]
     Route: 048
     Dates: start: 20080726, end: 20080830
  8. CONGESCOR [Suspect]
     Route: 048
     Dates: start: 20080726
  9. CARDIRENE [Concomitant]
     Indication: PROPHYLAXIS
     Route: 048
     Dates: start: 20080726

REACTIONS (3)
  - HYPOTENSION [None]
  - RENAL IMPAIRMENT [None]
  - URINARY RETENTION [None]
